FAERS Safety Report 23641416 (Version 1)
Quarter: 2024Q1

REPORT INFORMATION
  Report Type: Spontaneous
  Country: US (occurrence: US)
  Receive Date: 20240318
  Receipt Date: 20240318
  Transmission Date: 20240410
  Serious: Yes (Other)
  Sender: FDA-Public Use
  Company Number: US-JNJFOC-20240328317

PATIENT
  Sex: Female

DRUGS (1)
  1. STELARA [Suspect]
     Active Substance: USTEKINUMAB
     Indication: Crohn^s disease
     Route: 058

REACTIONS (5)
  - Intestinal ulcer [Unknown]
  - Blood creatinine increased [Not Recovered/Not Resolved]
  - Myositis [Unknown]
  - Arthralgia [Not Recovered/Not Resolved]
  - Off label use [Unknown]
